FAERS Safety Report 9991514 (Version 2)
Quarter: 2014Q2

REPORT INFORMATION
  Report Type: Spontaneous
  Country: US (occurrence: US)
  Receive Date: 20140310
  Receipt Date: 20140625
  Transmission Date: 20141212
  Serious: Yes (Hospitalization)
  Sender: FDA-Public Use
  Company Number: US-BAYER-2014-034648

PATIENT
  Age: 39 Year
  Sex: Female

DRUGS (1)
  1. MIRENA [Suspect]
     Indication: CONTRACEPTION
     Dosage: 20 MCG/24HR, CONT
     Route: 015
     Dates: start: 20061001, end: 20120201

REACTIONS (8)
  - Device dislocation [None]
  - Device dislocation [None]
  - Injury [None]
  - Pain [None]
  - Emotional distress [None]
  - Device misuse [None]
  - Medical device discomfort [None]
  - Device issue [None]
